FAERS Safety Report 23910530 (Version 1)
Quarter: 2024Q2

REPORT INFORMATION
  Report Type: Spontaneous
  Country: US (occurrence: US)
  Receive Date: 20240528
  Receipt Date: 20240528
  Transmission Date: 20240716
  Serious: No
  Sender: FDA-Public Use
  Company Number: US-BRACCO-2024US00941

PATIENT
  Age: 72 Year
  Sex: Male

DRUGS (2)
  1. BARIUM SULFATE [Suspect]
     Active Substance: BARIUM SULFATE
     Indication: Computerised tomogram intestine
     Dosage: ONE BOTTLE
     Route: 048
     Dates: start: 20240222, end: 20240222
  2. BARIUM SULFATE [Suspect]
     Active Substance: BARIUM SULFATE
     Indication: Computerised tomogram intestine
     Dosage: ONE BOTTLE
     Route: 048
     Dates: start: 20240223, end: 20240223

REACTIONS (2)
  - Expired product administered [Unknown]
  - No adverse event [Unknown]

NARRATIVE: CASE EVENT DATE: 20240222
